FAERS Safety Report 11840084 (Version 2)
Quarter: 2016Q1

REPORT INFORMATION
  Report Type: Report from Study
  Country: ZA (occurrence: ZA)
  Receive Date: 20151216
  Receipt Date: 20160115
  Transmission Date: 20160525
  Serious: Yes (Death)
  Sender: FDA-Public Use
  Company Number: PHHY2015ZA159656

PATIENT

DRUGS (4)
  1. ISOSORBIDE DINITRATE. [Suspect]
     Active Substance: ISOSORBIDE DINITRATE
     Indication: CARDIAC FAILURE ACUTE
     Dosage: 25 MG HYDRALAZINE/10 MG ISOSORBIDE DINITRATE TID
  2. ISOSORBIDE DINITRATE. [Suspect]
     Active Substance: ISOSORBIDE DINITRATE
     Indication: LEFT VENTRICULAR DYSFUNCTION
     Dosage: UP-TITRATING TO 50 MG HYDRALAZINE/20 MG ISOSORBIDE DINITRATE TID
     Route: 048
  3. HYDRALAZINE [Suspect]
     Active Substance: HYDRALAZINE HYDROCHLORIDE
     Indication: LEFT VENTRICULAR DYSFUNCTION
     Dosage: UNK UNK, UP-TITRATING TO 50 MG HYDRALAZINE/20 MG ISOSORBIDE DINITRATE TID
     Route: 048
  4. HYDRALAZINE [Suspect]
     Active Substance: HYDRALAZINE HYDROCHLORIDE
     Indication: CARDIAC FAILURE ACUTE
     Dosage: 25 MG HYDRALAZINE/10 MG ISOSORBIDE DINITRATE TID
     Route: 048

REACTIONS (1)
  - Cardiac failure [Fatal]

NARRATIVE: CASE EVENT DATE: 20140310
